FAERS Safety Report 4333757-9 (Version None)
Quarter: 2004Q2

REPORT INFORMATION
  Report Type: 
  Country: None (occurrence: None)
  Receive Date: 20040402
  Receipt Date: 20040322
  Transmission Date: 20050107
  Serious: Yes (Other)
  Sender: FDA-Public Use
  Company Number: 2004020007

PATIENT
  Age: 71 Year
  Sex: Male

DRUGS (2)
  1. TAHOR (ATORVASTATIN) [Suspect]
     Indication: DYSLIPIDAEMIA
     Dosage: 10 MG (DAILY), UKNOWN
  2. PHENYTOIN [Concomitant]

REACTIONS (1)
  - SIMPLE PARTIAL SEIZURES [None]
